FAERS Safety Report 16197982 (Version 1)
Quarter: 2019Q2

REPORT INFORMATION
  Report Type: Spontaneous
  Country: US (occurrence: US)
  Receive Date: 20190413
  Receipt Date: 20190413
  Transmission Date: 20190711
  Serious: Yes (Disabling, Other)
  Sender: FDA-Public Use
  Company Number: None

PATIENT
  Age: 44 Year
  Sex: Female
  Weight: 87.54 kg

DRUGS (1)
  1. MIRENA [Suspect]
     Active Substance: LEVONORGESTREL

REACTIONS (4)
  - Acute motor-sensory axonal neuropathy [None]
  - Paraesthesia [None]
  - Aortic aneurysm [None]
  - Neuropathy peripheral [None]

NARRATIVE: CASE EVENT DATE: 20180401
